FAERS Safety Report 19363403 (Version 2)
Quarter: 2021Q2

REPORT INFORMATION
  Report Type: Report from Study
  Country: KR (occurrence: KR)
  Receive Date: 20210603
  Receipt Date: 20210605
  Transmission Date: 20210717
  Serious: Yes (Other)
  Sender: FDA-Public Use
  Company Number: KR-AMGEN INC.-KORCT2021084127

PATIENT
  Age: 63 Year
  Sex: Male

DRUGS (38)
  1. MAGNESIUM OXIDE. [Concomitant]
     Active Substance: MAGNESIUM OXIDE
     Indication: PRODUCT USED FOR UNKNOWN INDICATION
     Dosage: 1000 MG
     Dates: start: 20140320, end: 20140329
  2. DECITABINE. [Concomitant]
     Active Substance: DECITABINE
     Dosage: 20 UNK
     Dates: start: 20140224, end: 20140224
  3. DECITABINE. [Concomitant]
     Active Substance: DECITABINE
     Dosage: 20 UNK
     Dates: start: 20140329, end: 20140329
  4. OXYCODONE [Concomitant]
     Active Substance: OXYCODONE
     Indication: PRODUCT USED FOR UNKNOWN INDICATION
     Dosage: 1 DF
     Dates: start: 20140324, end: 20140324
  5. DECITABINE. [Concomitant]
     Active Substance: DECITABINE
     Dosage: 20 UNK
     Dates: start: 20140226, end: 20140226
  6. BISACODYL. [Concomitant]
     Active Substance: BISACODYL
     Indication: PRODUCT USED FOR UNKNOWN INDICATION
     Dosage: 1 DF
     Dates: start: 20140320, end: 20140320
  7. FAMOTIDINE. [Concomitant]
     Active Substance: FAMOTIDINE
     Indication: PRODUCT USED FOR UNKNOWN INDICATION
     Dosage: 1 UNK
     Dates: start: 20140318, end: 20140318
  8. PROPRANOLOL [Concomitant]
     Active Substance: PROPRANOLOL HYDROCHLORIDE
     Indication: PRODUCT USED FOR UNKNOWN INDICATION
     Dosage: 10 MG
  9. FILGRASTIM [Suspect]
     Active Substance: FILGRASTIM
     Indication: PRODUCT USED FOR UNKNOWN INDICATION
     Dosage: 300 UNK
     Route: 065
     Dates: start: 20140305, end: 20140616
  10. GRAN [Suspect]
     Active Substance: FILGRASTIM
     Indication: PRODUCT USED FOR UNKNOWN INDICATION
     Dosage: 300 UNK
     Route: 065
     Dates: start: 20140305, end: 20140616
  11. DECITABINE. [Concomitant]
     Active Substance: DECITABINE
     Dosage: 20 UNK
     Dates: start: 20140227, end: 20140227
  12. DECITABINE. [Concomitant]
     Active Substance: DECITABINE
     Dosage: 20 UNK
     Dates: start: 20140429, end: 20140429
  13. DECITABINE. [Concomitant]
     Active Substance: DECITABINE
     Dosage: 20 UNK
     Dates: start: 20140502, end: 20140502
  14. ALPRAZOLAM. [Concomitant]
     Active Substance: ALPRAZOLAM
     Indication: PRODUCT USED FOR UNKNOWN INDICATION
     Dosage: 0.5 DF
  15. CEFTAZIDIME. [Concomitant]
     Active Substance: CEFTAZIDIME
     Indication: PRODUCT USED FOR UNKNOWN INDICATION
     Dosage: 2 UNK
     Dates: start: 20140320
  16. HYDROMORPHONE [Concomitant]
     Active Substance: HYDROMORPHONE
     Indication: PRODUCT USED FOR UNKNOWN INDICATION
     Dosage: 1 DF
     Dates: start: 20140323, end: 20140324
  17. LEVOFLOXACIN. [Concomitant]
     Active Substance: LEVOFLOXACIN
     Indication: PRODUCT USED FOR UNKNOWN INDICATION
     Dosage: 500 UNK
     Dates: start: 20140221, end: 20140305
  18. LEVOFLOXACIN. [Concomitant]
     Active Substance: LEVOFLOXACIN
     Dosage: 500 MG
     Dates: start: 20140408, end: 20140617
  19. OXYCODONE/NALOXONE RATIOPHARM [Concomitant]
     Indication: PRODUCT USED FOR UNKNOWN INDICATION
     Dosage: 1 DF
     Dates: start: 20140326, end: 20140329
  20. PSEUDOEPHEDRINE. [Concomitant]
     Active Substance: PSEUDOEPHEDRINE HYDROCHLORIDE
     Indication: PRODUCT USED FOR UNKNOWN INDICATION
     Dosage: 1 DF
     Dates: start: 20140512, end: 20140519
  21. DECITABINE. [Concomitant]
     Active Substance: DECITABINE
     Dosage: 20 UNK
     Dates: start: 20140225, end: 20140225
  22. DECITABINE. [Concomitant]
     Active Substance: DECITABINE
     Dosage: 20 UNK
     Dates: start: 20140401, end: 20140401
  23. CODEINE [Concomitant]
     Active Substance: CODEINE
     Indication: PRODUCT USED FOR UNKNOWN INDICATION
     Dosage: 1 UNK
     Dates: start: 20140322, end: 20140322
  24. LACTULOSE. [Concomitant]
     Active Substance: LACTULOSE
     Dosage: 2 UNK
     Dates: start: 20140325, end: 20140325
  25. LENOGRASTIM [Concomitant]
     Active Substance: LENOGRASTIM
     Indication: PRODUCT USED FOR UNKNOWN INDICATION
     Dosage: 250 UNK
     Dates: start: 20140325, end: 20140606
  26. DECITABINE. [Concomitant]
     Active Substance: DECITABINE
     Indication: PRODUCT USED FOR UNKNOWN INDICATION
     Dosage: 20 UNK
     Dates: start: 20140223, end: 20140223
  27. DECITABINE. [Concomitant]
     Active Substance: DECITABINE
     Dosage: 20 UNK
     Dates: start: 20140328, end: 20140328
  28. METRONIDAZOLE. [Concomitant]
     Active Substance: METRONIDAZOLE
     Indication: PRODUCT USED FOR UNKNOWN INDICATION
     Dosage: 1 DF
     Dates: start: 20140320, end: 20140329
  29. DECITABINE. [Concomitant]
     Active Substance: DECITABINE
     Dosage: 20 UNK
     Dates: start: 20140331, end: 20140331
  30. DECITABINE. [Concomitant]
     Active Substance: DECITABINE
     Dosage: 20 UNK
     Dates: start: 20140430, end: 20140430
  31. AMBROXOL [Concomitant]
     Active Substance: AMBROXOL
     Indication: PRODUCT USED FOR UNKNOWN INDICATION
     Dosage: 1 DF
     Dates: start: 20140512, end: 20140519
  32. MORPHINE [Concomitant]
     Active Substance: MORPHINE
     Indication: PRODUCT USED FOR UNKNOWN INDICATION
     Dosage: 2 UNK
     Dates: start: 20140324, end: 20140326
  33. PROPACETAMOL [Concomitant]
     Active Substance: PROPACETAMOL
     Indication: PRODUCT USED FOR UNKNOWN INDICATION
     Dosage: 1 UNK
     Dates: start: 20140318, end: 20140320
  34. DECITABINE. [Concomitant]
     Active Substance: DECITABINE
     Dosage: 20 UNK
     Dates: start: 20140330, end: 20140330
  35. DECITABINE. [Concomitant]
     Active Substance: DECITABINE
     Dosage: 20 UNK
     Dates: start: 20140501, end: 20140501
  36. LACTULOSE. [Concomitant]
     Active Substance: LACTULOSE
     Indication: PRODUCT USED FOR UNKNOWN INDICATION
     Dosage: 1 UNK
     Dates: start: 20140324, end: 20140324
  37. TRAMADOL. [Concomitant]
     Active Substance: TRAMADOL
     Indication: PRODUCT USED FOR UNKNOWN INDICATION
     Dosage: 1 UNK
     Dates: start: 20140318, end: 20140322
  38. DECITABINE. [Concomitant]
     Active Substance: DECITABINE
     Dosage: 20 UNK
     Dates: start: 20140428, end: 20140428

REACTIONS (9)
  - Pain [Recovered/Resolved]
  - Spleen disorder [Not Recovered/Not Resolved]
  - Interstitial lung disease [Not Recovered/Not Resolved]
  - Constipation [Recovered/Resolved]
  - Upper respiratory tract infection [Recovered/Resolved]
  - Nausea [Recovered/Resolved]
  - Asthenia [Not Recovered/Not Resolved]
  - Headache [Recovered/Resolved]
  - Neutropenia [Recovered/Resolved]

NARRATIVE: CASE EVENT DATE: 20140305
